FAERS Safety Report 23528436 (Version 2)
Quarter: 2024Q1

REPORT INFORMATION
  Report Type: Spontaneous
  Country: US (occurrence: US)
  Receive Date: 20240215
  Receipt Date: 20240221
  Transmission Date: 20240410
  Serious: No
  Sender: FDA-Public Use
  Company Number: US-PFIZER INC-PV202400021232

PATIENT
  Age: 71 Year
  Sex: Male

DRUGS (4)
  1. AZITHROMYCIN [Suspect]
     Active Substance: AZITHROMYCIN
     Dosage: UNK, DAILY
  2. RIFABUTIN [Suspect]
     Active Substance: RIFABUTIN
     Dosage: UNK, DAILY
  3. ETHAMBUTOL [Suspect]
     Active Substance: ETHAMBUTOL HYDROCHLORIDE
     Dosage: UNK, DAILY
  4. AMIKACIN [Suspect]
     Active Substance: AMIKACIN
     Dosage: UNK, DAILY
     Route: 042

REACTIONS (1)
  - Drug eruption [Unknown]
